FAERS Safety Report 24205077 (Version 1)
Quarter: 2024Q3

REPORT INFORMATION
  Report Type: Spontaneous
  Country: FR (occurrence: FR)
  Receive Date: 20240813
  Receipt Date: 20240813
  Transmission Date: 20241017
  Serious: Yes (Hospitalization)
  Sender: Waylis
  Company Number: None

PATIENT
  Age: 50 Year
  Sex: Male

DRUGS (4)
  1. VALIUM [Suspect]
     Active Substance: DIAZEPAM
     Indication: Schizophrenia
     Route: 050
     Dates: start: 20240319, end: 20240501
  2. LOXAPINE SUCCINATE [Suspect]
     Active Substance: LOXAPINE SUCCINATE
     Indication: Schizophrenia
     Route: 050
     Dates: start: 20240319, end: 20240501
  3. PALIPERIDONE [Suspect]
     Active Substance: PALIPERIDONE
     Indication: Schizophrenia
     Dosage: ; IN TOTAL
     Route: 050
     Dates: start: 20240426, end: 20240426
  4. PALIPERIDONE [Suspect]
     Active Substance: PALIPERIDONE
     Dosage: ; IN TOTAL
     Route: 050
     Dates: start: 20240319, end: 20240319

REACTIONS (5)
  - Dystonia [Not Recovered/Not Resolved]
  - Mydriasis [Recovered/Resolved]
  - Cognitive disorder [Recovering/Resolving]
  - Extrapyramidal disorder [Not Recovered/Not Resolved]
  - Altered state of consciousness [Recovered/Resolved]

NARRATIVE: CASE EVENT DATE: 20240402
